FAERS Safety Report 19269054 (Version 1)
Quarter: 2021Q2

REPORT INFORMATION
  Report Type: Report from Study
  Country: IN (occurrence: IN)
  Receive Date: 20210518
  Receipt Date: 20210518
  Transmission Date: 20210717
  Serious: Yes (Other)
  Sender: FDA-Public Use
  Company Number: PHHY2019IN144009

PATIENT
  Age: 59 Year
  Sex: Male

DRUGS (5)
  1. VOTRIENT [Suspect]
     Active Substance: PAZOPANIB HYDROCHLORIDE
     Dosage: 600 MG, QD
     Route: 065
     Dates: start: 20190416, end: 20210327
  2. VOTRIENT [Suspect]
     Active Substance: PAZOPANIB HYDROCHLORIDE
     Dosage: 600 MG, QD
     Route: 065
     Dates: start: 20210407
  3. VOTRIENT [Suspect]
     Active Substance: PAZOPANIB HYDROCHLORIDE
     Dosage: 600 MG, QD (ONCE DAILY)
     Route: 048
     Dates: start: 20190424
  4. VOTRIENT [Suspect]
     Active Substance: PAZOPANIB HYDROCHLORIDE
     Indication: RENAL CELL CARCINOMA
     Dosage: 800 MG, QD (ONCE DAILY)
     Route: 048
     Dates: start: 201901, end: 20190416
  5. VOTRIENT [Suspect]
     Active Substance: PAZOPANIB HYDROCHLORIDE
     Dosage: 800 MG, QD
     Route: 065
     Dates: start: 20190115

REACTIONS (22)
  - Malignant neoplasm progression [Unknown]
  - Urosepsis [Recovered/Resolved]
  - Dysuria [Recovered/Resolved]
  - Palmar erythema [Recovered/Resolved]
  - Blood pressure increased [Recovered/Resolved]
  - Metastases to lymph nodes [Unknown]
  - Renal function test abnormal [Recovered/Resolved]
  - C-reactive protein increased [Recovered/Resolved]
  - Pruritus [Recovered/Resolved]
  - Vomiting [Recovered/Resolved]
  - Prostatic specific antigen increased [Recovered/Resolved]
  - Diarrhoea [Recovered/Resolved]
  - Cardiogenic shock [Recovered/Resolved]
  - Full blood count abnormal [Recovered/Resolved]
  - Weight decreased [Not Recovered/Not Resolved]
  - Acute kidney injury [Recovered/Resolved]
  - Renal cell carcinoma [Unknown]
  - Arthralgia [Not Recovered/Not Resolved]
  - Procalcitonin increased [Recovered/Resolved]
  - Pyrexia [Recovered/Resolved]
  - Scrotal erythema [Recovered/Resolved]
  - Liver function test abnormal [Recovered/Resolved]

NARRATIVE: CASE EVENT DATE: 201904
